FAERS Safety Report 13051185 (Version 1)
Quarter: 2016Q4

REPORT INFORMATION
  Report Type: Spontaneous
  Country: CN (occurrence: CN)
  Receive Date: 20161221
  Receipt Date: 20161221
  Transmission Date: 20170207
  Serious: Yes (Other)
  Sender: FDA-Public Use
  Company Number: CN-JNJFOC-20161216032

PATIENT

DRUGS (1)
  1. RISPERIDONE. [Suspect]
     Active Substance: RISPERIDONE
     Indication: SCHIZOPHRENIA
     Dosage: STRENGTH 1-2 MG ANTIPSYCHOTIC RISPERIDONE MONOTHERAPY FOR MORE THAN 6 CONSECUTIVE MONTHS
     Route: 065

REACTIONS (2)
  - Metabolic disorder [Unknown]
  - Extrapyramidal disorder [Unknown]
